FAERS Safety Report 4315160-0 (Version None)
Quarter: 2004Q1

REPORT INFORMATION
  Report Type: 
  Country: None (occurrence: None)
  Receive Date: 20040310
  Receipt Date: 20010503
  Transmission Date: 20041129
  Serious: Yes (Death)
  Sender: FDA-Public Use
  Company Number: PHHO2001IT03800

PATIENT
  Age: 82 Year
  Sex: Female
  Weight: 49 kg

DRUGS (1)
  1. TAMOXIFEN CITRATE [Suspect]
     Indication: BREAST CANCER
     Dosage: 2.5 MG, QD
     Route: 048
     Dates: start: 19990818

REACTIONS (2)
  - CARDIAC FAILURE [None]
  - CONCOMITANT DISEASE PROGRESSION [None]
